FAERS Safety Report 4895063-3 (Version None)
Quarter: 2006Q1

REPORT INFORMATION
  Report Type: 
  Country: None (occurrence: None)
  Receive Date: 20060130
  Receipt Date: 20060119
  Transmission Date: 20060701
  Serious: Yes (Hospitalization)
  Sender: FDA-Public Use
  Company Number: PHRM2006FR00561

PATIENT
  Age: 24 Hour
  Sex: Male
  Weight: 2.8 kg

DRUGS (3)
  1. TEGRETOL [Suspect]
     Route: 064
  2. RIVOTRIL [Suspect]
     Route: 064
  3. KEPPRA [Concomitant]
     Route: 064

REACTIONS (3)
  - DRUG EXPOSURE DURING PREGNANCY [None]
  - POOR SUCKING REFLEX [None]
  - SOMNOLENCE NEONATAL [None]
